FAERS Safety Report 5703060-0 (Version None)
Quarter: 2008Q2

REPORT INFORMATION
  Report Type: 
  Country: None (occurrence: None)
  Receive Date: 20080408
  Receipt Date: 20080328
  Transmission Date: 20081010
  Serious: Yes (Hospitalization)
  Sender: FDA-Public Use
  Company Number: PHBS2008CH03751

PATIENT
  Age: 86 Year
  Sex: Male

DRUGS (9)
  1. DIOVAN [Suspect]
     Dosage: 160 MG/DAY,
  2. METOPROLOL SUCCINATE [Suspect]
     Dosage: 50 MG/DAY
     Dates: end: 20080128
  3. XENALON(SPIRONOLACTONE) TABLET [Suspect]
     Indication: RENAL FAILURE
     Dosage: 25 MG/DAY, ORAL
     Route: 048
  4. MARCUMAR [Concomitant]
  5. TORSEMIDE [Concomitant]
  6. METFORMINA (METFORMIN) [Concomitant]
  7. ASPIRIN [Concomitant]
  8. NITRODERM [Concomitant]
  9. OMEPRAZOLE [Concomitant]

REACTIONS (6)
  - ATRIAL FIBRILLATION [None]
  - BRADYCARDIA [None]
  - FATIGUE [None]
  - GAIT DISTURBANCE [None]
  - HYPERKALAEMIA [None]
  - RENAL FAILURE [None]
